FAERS Safety Report 10062985 (Version 3)
Quarter: 2014Q3

REPORT INFORMATION
  Report Type: Report from Study
  Country: IT (occurrence: IT)
  Receive Date: 20140407
  Receipt Date: 20140714
  Transmission Date: 20150326
  Serious: Yes (Hospitalization)
  Sender: FDA-Public Use
  Company Number: IT-BRISTOL-MYERS SQUIBB COMPANY-20607628

PATIENT
  Age: 48 Year
  Sex: Male
  Weight: 54 kg

DRUGS (2)
  1. CISPLATIN. [Suspect]
     Active Substance: CISPLATIN
     Indication: HEAD AND NECK CANCER
     Dosage: RECENT DOSE 08OCT13:TOTAL=4.7619MG/M2
     Route: 042
     Dates: start: 20130730
  2. CETUXIMAB [Suspect]
     Active Substance: CETUXIMAB
     Indication: HEAD AND NECK CANCER
     Dosage: RECENT DOSE 22OCT13?06AUG2013-ONG: 250MG/M2
     Route: 042
     Dates: start: 20130730

REACTIONS (4)
  - Dysphagia [Recovered/Resolved]
  - Hypomagnesaemia [Recovered/Resolved]
  - Hypocalcaemia [Recovered/Resolved]
  - Hyponatraemia [Recovered/Resolved]

NARRATIVE: CASE EVENT DATE: 20131022
